FAERS Safety Report 20714662 (Version 1)
Quarter: 2022Q2

REPORT INFORMATION
  Report Type: Spontaneous
  Country: TR (occurrence: TR)
  Receive Date: 20220415
  Receipt Date: 20220415
  Transmission Date: 20220721
  Serious: Yes (Hospitalization)
  Sender: FDA-Public Use
  Company Number: TR-EXELA PHARMA SCIENCES, LLC-2022EXL00008

PATIENT
  Age: 20 Year
  Sex: Female

DRUGS (2)
  1. VERAPAMIL HYDROCHLORIDE [Suspect]
     Active Substance: VERAPAMIL HYDROCHLORIDE
     Indication: Supraventricular tachycardia
     Dosage: 15 TABLETS (1800 MG) 20-30 MINUTES APART IN 9 HOURS
     Route: 048
  2. VERAPAMIL HYDROCHLORIDE [Suspect]
     Active Substance: VERAPAMIL HYDROCHLORIDE
     Dosage: 120 MG, 1X/DAY
     Route: 048

REACTIONS (5)
  - Cardiogenic shock [Recovered/Resolved]
  - Non-cardiogenic pulmonary oedema [Recovered/Resolved]
  - Mental status changes [Recovered/Resolved]
  - Atrioventricular block [Recovered/Resolved]
  - Toxicity to various agents [Recovered/Resolved]
